FAERS Safety Report 8565195-7 (Version None)
Quarter: 2012Q3

REPORT INFORMATION
  Report Type: 
  Country: None (occurrence: None)
  Receive Date: 20120803
  Receipt Date: 20120726
  Transmission Date: 20120928
  Serious: Yes (Other)
  Sender: FDA-Public Use
  Company Number: US-GLAXOSMITHKLINE-A0979321A

PATIENT
  Age: 67 Year
  Sex: Male

DRUGS (7)
  1. LEVOBUNOLOL HCL [Concomitant]
  2. HYDRALAZINE HCL [Concomitant]
  3. LAMICTAL [Suspect]
     Indication: CONVULSION
     Dosage: 200MG TWICE PER DAY
     Route: 048
  4. METOPROLOL TARTRATE [Concomitant]
  5. SIMVASTATIN [Concomitant]
  6. VERAPAMIL [Concomitant]
  7. EPITOL [Concomitant]

REACTIONS (2)
  - CONVULSION [None]
  - HYPERTENSION [None]
